FAERS Safety Report 8770650 (Version 1)
Quarter: 2012Q4

REPORT INFORMATION
  Report Type: Report from Study
  Country: DE (occurrence: DE)
  Receive Date: 20120907
  Receipt Date: 20120907
  Transmission Date: 20130627
  Serious: Yes (Hospitalization)
  Sender: FDA-Public Use
  Company Number: DE-ROCHE-1115713

PATIENT
  Sex: Female
  Weight: 85 kg

DRUGS (1)
  1. ROACTEMRA [Suspect]
     Indication: RHEUMATOID ARTHRITIS
     Route: 042
     Dates: start: 20111013

REACTIONS (2)
  - Diabetic foot [Not Recovered/Not Resolved]
  - Toe amputation [Not Recovered/Not Resolved]
